FAERS Safety Report 9481139 (Version 1)
Quarter: 2013Q3

REPORT INFORMATION
  Report Type: Spontaneous
  Country: PR (occurrence: PR)
  Receive Date: 20130828
  Receipt Date: 20130828
  Transmission Date: 20140515
  Serious: Yes (Other)
  Sender: FDA-Public Use
  Company Number: PR-AMGEN-KDL155376

PATIENT
  Age: 26 Year
  Sex: Female

DRUGS (2)
  1. ENBREL [Suspect]
     Indication: PSORIASIS
     Dosage: 25 MG, UNK
     Route: 058
     Dates: start: 20051020
  2. METHOTREXATE [Concomitant]
     Dosage: UNK UNK, UNK
     Dates: start: 20040401

REACTIONS (4)
  - Hypersensitivity [Unknown]
  - Eye pruritus [Unknown]
  - Sneezing [Unknown]
  - Fatigue [Unknown]
